FAERS Safety Report 5784257-0 (Version None)
Quarter: 2008Q2

REPORT INFORMATION
  Report Type: 
  Country: None (occurrence: None)
  Receive Date: 20080624
  Receipt Date: 20070611
  Transmission Date: 20081010
  Serious: No
  Sender: FDA-Public Use
  Company Number: US-ASTRAZENECA-2007UW12311

PATIENT
  Age: 70 Year
  Sex: Female
  Weight: 78.5 kg

DRUGS (5)
  1. PULMICORT RESPULES [Suspect]
     Indication: CHRONIC OBSTRUCTIVE PULMONARY DISEASE
     Dosage: 0.25MG/2ML
     Route: 055
  2. PULMICORT RESPULES [Suspect]
     Indication: ASTHMA
     Dosage: 0.25MG/2ML
     Route: 055
  3. COZAAR [Concomitant]
  4. CARDURA [Concomitant]
  5. DUONEB [Concomitant]

REACTIONS (1)
  - ALOPECIA [None]
